FAERS Safety Report 25894970 (Version 1)
Quarter: 2025Q4

REPORT INFORMATION
  Report Type: Spontaneous
  Country: CN (occurrence: CN)
  Receive Date: 20251008
  Receipt Date: 20251008
  Transmission Date: 20260118
  Serious: Yes (Other)
  Sender: ROCHE
  Company Number: CN-ROCHE-10000398606

PATIENT
  Age: 65 Year
  Sex: Female

DRUGS (4)
  1. OBINUTUZUMAB [Suspect]
     Active Substance: OBINUTUZUMAB
     Indication: Follicular lymphoma
     Dosage: ON  DAY 0, DAY 8 AND DAY 15
     Route: 042
     Dates: start: 20250905, end: 20250922
  2. CYCLOPHOSPHAMIDE [Suspect]
     Active Substance: CYCLOPHOSPHAMIDE
     Indication: Follicular lymphoma
     Route: 042
     Dates: start: 20250905, end: 20250905
  3. VINDESINE SULFATE [Suspect]
     Active Substance: VINDESINE SULFATE
     Indication: Follicular lymphoma
     Route: 042
     Dates: start: 20250905, end: 20250905
  4. EPIRUBICIN [Suspect]
     Active Substance: EPIRUBICIN
     Indication: Follicular lymphoma
     Route: 042
     Dates: start: 20250905, end: 20250905

REACTIONS (1)
  - Myelosuppression [Recovering/Resolving]

NARRATIVE: CASE EVENT DATE: 20250915
